FAERS Safety Report 8184631-1 (Version None)
Quarter: 2012Q1

REPORT INFORMATION
  Report Type: 
  Country: None (occurrence: None)
  Receive Date: 20120305
  Receipt Date: 20120301
  Transmission Date: 20120608
  Serious: Yes (Other)
  Sender: FDA-Public Use
  Company Number: JP-PFIZER INC-2012055770

PATIENT
  Age: 31 Year
  Sex: Female

DRUGS (2)
  1. ZOLPIDEM [Suspect]
     Dosage: 5 MG DAILY
     Route: 048
     Dates: start: 20110801, end: 20111212
  2. ZOLOFT [Suspect]
     Dosage: 75 MG DAILY
     Route: 048
     Dates: start: 20110801, end: 20111212

REACTIONS (1)
  - HEPATIC FUNCTION ABNORMAL [None]
